FAERS Safety Report 10033309 (Version 2)
Quarter: 2014Q2

REPORT INFORMATION
  Report Type: Spontaneous
  Country: SE (occurrence: SE)
  Receive Date: 20140325
  Receipt Date: 20140522
  Transmission Date: 20141212
  Serious: Yes (Other)
  Sender: FDA-Public Use
  Company Number: SE-ROCHE-1369387

PATIENT
  Age: 50 Year
  Sex: Female

DRUGS (4)
  1. XOLAIR [Suspect]
     Indication: ASTHMA
     Route: 058
     Dates: start: 2010
  2. XOLAIR [Suspect]
     Route: 065
     Dates: end: 20140210
  3. XOLAIR [Suspect]
     Route: 065
     Dates: start: 20140313
  4. MONTELUKAST [Concomitant]
     Route: 065
     Dates: end: 20140210

REACTIONS (3)
  - VIIth nerve paralysis [Recovering/Resolving]
  - Anosmia [Recovering/Resolving]
  - Feeling abnormal [Recovering/Resolving]
